FAERS Safety Report 10207857 (Version 1)
Quarter: 2014Q2

REPORT INFORMATION
  Report Type: Spontaneous
  Country: US (occurrence: None)
  Receive Date: 20140529
  Receipt Date: 20140529
  Transmission Date: 20141212
  Serious: Yes (Life-Threatening, Hospitalization, Disabling, Other)
  Sender: FDA-Public Use
  Company Number: None

PATIENT
  Age: 40 Year
  Sex: Female
  Weight: 79.38 kg

DRUGS (1)
  1. METFORMIN 1000 MG [Suspect]
     Dosage: TWICE DAILY

REACTIONS (7)
  - Vomiting [None]
  - Weight decreased [None]
  - Cardiac failure congestive [None]
  - Angiopathy [None]
  - Malnutrition [None]
  - Myocardial infarction [None]
  - Impaired gastric emptying [None]
